FAERS Safety Report 19189098 (Version 1)
Quarter: 2021Q2

REPORT INFORMATION
  Report Type: Spontaneous
  Country: US (occurrence: US)
  Receive Date: 20210427
  Receipt Date: 20210427
  Transmission Date: 20210717
  Serious: Yes (Disabling)
  Sender: FDA-Public Use
  Company Number: None

PATIENT
  Age: 51 Year
  Sex: Female
  Weight: 67.5 kg

DRUGS (7)
  1. MONTELUKAST [Suspect]
     Active Substance: MONTELUKAST SODIUM
     Indication: SEASONAL ALLERGY
     Dosage: ?          QUANTITY:1 TABLET(S);?
     Route: 048
     Dates: start: 20030301, end: 20210315
  2. CALCIUM [Concomitant]
     Active Substance: CALCIUM
  3. D3?B12?MULTY VITAMINS [Concomitant]
  4. BLACK SEED OIL [Concomitant]
  5. ARMOUR THYROID [Concomitant]
     Active Substance: THYROID, PORCINE
  6. VITAMIN C?D3?B12?MULTY VITAMINS [Concomitant]
  7. OREGANO LEAF OIL. [Concomitant]
     Active Substance: OREGANO LEAF OIL

REACTIONS (15)
  - Pruritus [None]
  - Hyperhidrosis [None]
  - Anxiety [None]
  - Agitation [None]
  - Hypoaesthesia [None]
  - Dyspnoea [None]
  - Product complaint [None]
  - Irritability [None]
  - Aggression [None]
  - Disturbance in attention [None]
  - Depression [None]
  - Frustration tolerance decreased [None]
  - White blood cell disorder [None]
  - Confusional state [None]
  - Anger [None]

NARRATIVE: CASE EVENT DATE: 20210215
